FAERS Safety Report 16682569 (Version 2)
Quarter: 2024Q2

REPORT INFORMATION
  Report Type: Spontaneous
  Country: AR (occurrence: None)
  Receive Date: 20190808
  Receipt Date: 20240430
  Transmission Date: 20240717
  Serious: Yes (Hospitalization, Other)
  Sender: FDA-Public Use
  Company Number: AR-ROCHE-2363918

PATIENT
  Sex: Female

DRUGS (19)
  1. RITUXIMAB [Suspect]
     Active Substance: RITUXIMAB
     Indication: Diffuse large B-cell lymphoma
     Dosage: FIRST CYCLE (R-CHOP)
     Route: 065
     Dates: start: 20180820
  2. RITUXIMAB [Suspect]
     Active Substance: RITUXIMAB
     Dosage: FIRST CYCLE (R-ESHAP)
     Route: 065
     Dates: start: 20190427
  3. RITUXIMAB [Suspect]
     Active Substance: RITUXIMAB
     Dosage: SECOND CYCLE (R-ESHAP)
     Route: 065
     Dates: start: 20190603
  4. RITUXIMAB [Suspect]
     Active Substance: RITUXIMAB
     Dosage: THIRD CYCLE (R-ESHAP)
     Route: 065
     Dates: start: 20190702
  5. CYCLOPHOSPHAMIDE [Concomitant]
     Active Substance: CYCLOPHOSPHAMIDE
     Indication: Diffuse large B-cell lymphoma
     Dosage: FIRST CYCLE
     Dates: start: 20180820
  6. VINCRISTINE [Concomitant]
     Active Substance: VINCRISTINE
     Indication: Diffuse large B-cell lymphoma
     Dosage: FIRST CYCLE
     Dates: start: 20180820
  7. PREDNISONE [Concomitant]
     Active Substance: PREDNISONE
     Indication: Diffuse large B-cell lymphoma
     Dosage: FIRST CYCLE
     Dates: start: 20180820
  8. ETOPOSIDE [Concomitant]
     Active Substance: ETOPOSIDE
     Indication: Diffuse large B-cell lymphoma
     Dosage: FIRST CYCLE
     Dates: start: 20190427
  9. ETOPOSIDE [Concomitant]
     Active Substance: ETOPOSIDE
     Dosage: SECOND CYCLE
     Dates: start: 20190603
  10. ETOPOSIDE [Concomitant]
     Active Substance: ETOPOSIDE
     Dosage: THIRD CYCLE
     Dates: start: 20190702
  11. METHYLPREDNISOLONE [Concomitant]
     Active Substance: METHYLPREDNISOLONE
     Indication: Diffuse large B-cell lymphoma
     Dosage: FIRST CYCLE
     Dates: start: 20190427
  12. METHYLPREDNISOLONE [Concomitant]
     Active Substance: METHYLPREDNISOLONE
     Dosage: SECOND CYCLE
     Dates: start: 20190603
  13. METHYLPREDNISOLONE [Concomitant]
     Active Substance: METHYLPREDNISOLONE
     Dosage: THIRD CYCLE
     Dates: start: 20190702
  14. CYTARABINE [Concomitant]
     Active Substance: CYTARABINE
     Indication: Diffuse large B-cell lymphoma
     Dosage: FIRST CYCLE
     Dates: start: 20190427
  15. CYTARABINE [Concomitant]
     Active Substance: CYTARABINE
     Dosage: SECOND CYCLE
     Dates: start: 20190603
  16. CYTARABINE [Concomitant]
     Active Substance: CYTARABINE
     Dosage: THIRD CYCLE
     Dates: start: 20190702
  17. CISPLATIN [Concomitant]
     Active Substance: CISPLATIN
     Indication: Diffuse large B-cell lymphoma
     Dosage: FIRST CYCLE
     Dates: start: 20190427
  18. CARBOPLATIN [Concomitant]
     Active Substance: CARBOPLATIN
     Indication: Diffuse large B-cell lymphoma
     Dosage: SECOND CYCLE
     Dates: start: 20190603
  19. CARBOPLATIN [Concomitant]
     Active Substance: CARBOPLATIN
     Dosage: THIRD CYCLE
     Dates: start: 20190702

REACTIONS (16)
  - Hydronephrosis [Not Recovered/Not Resolved]
  - Urinary tract infection [Not Recovered/Not Resolved]
  - Urinary incontinence [Recovered/Resolved]
  - Gastrointestinal disorder [Recovered/Resolved]
  - Anaemia [Unknown]
  - Neutropenia [Unknown]
  - Platelet count abnormal [Unknown]
  - Febrile neutropenia [Unknown]
  - Renal impairment [Unknown]
  - Septic shock [Unknown]
  - Klebsiella urinary tract infection [Unknown]
  - Haemorrhage [Unknown]
  - Retinal haemorrhage [Unknown]
  - Leukocytosis [Unknown]
  - Drug resistance [Unknown]
  - Faecaloma [Recovered/Resolved]
